FAERS Safety Report 24786478 (Version 1)
Quarter: 2024Q4

REPORT INFORMATION
  Report Type: Spontaneous
  Country: US (occurrence: US)
  Receive Date: 20241230
  Receipt Date: 20241230
  Transmission Date: 20250114
  Serious: No
  Sender: STALLERGENES
  Company Number: US-AIMMUNE THERAPEUTICS, INC.-2024AIMT00168

PATIENT
  Age: 16 Year
  Sex: Female
  Weight: 44.444 kg

DRUGS (3)
  1. PALFORZIA [Suspect]
     Active Substance: PEANUT
     Indication: Food allergy
     Dosage: IDE (0.5-6.0MG), ONCE, LAST DOSE PRIOR TO EVENTS
     Dates: start: 20221208, end: 20221208
  2. PALFORZIA [Suspect]
     Active Substance: PEANUT
     Dosage: 100 MG, 1X/DAY
  3. PALFORZIA [Suspect]
     Active Substance: PEANUT
     Dosage: 100 MG, ONCE, LAST DOSE PRIOR TO EVENTS

REACTIONS (5)
  - Dyspepsia [Not Recovered/Not Resolved]
  - Abdominal discomfort [Not Recovered/Not Resolved]
  - Nausea [Not Recovered/Not Resolved]
  - Throat irritation [Not Recovered/Not Resolved]
  - Tonsillar hypertrophy [Not Recovered/Not Resolved]

NARRATIVE: CASE EVENT DATE: 20221208
